FAERS Safety Report 12336676 (Version 2)
Quarter: 2016Q2

REPORT INFORMATION
  Report Type: Spontaneous
  Country: US (occurrence: US)
  Receive Date: 20160505
  Receipt Date: 20160606
  Transmission Date: 20160815
  Serious: Yes (Other)
  Sender: FDA-Public Use
  Company Number: US-TEVA-657210ACC

PATIENT
  Sex: Female

DRUGS (1)
  1. PARAGARD T 380A [Suspect]
     Active Substance: COPPER
     Dates: end: 20160421

REACTIONS (4)
  - Abortion induced [Unknown]
  - Pregnancy on contraceptive [Unknown]
  - Drug ineffective [Unknown]
  - Device breakage [Unknown]
